FAERS Safety Report 6050768-6 (Version None)
Quarter: 2009Q1

REPORT INFORMATION
  Report Type: 
  Country: None (occurrence: None)
  Receive Date: 20090121
  Receipt Date: 20090121
  Transmission Date: 20090719
  Serious: Yes (Life-Threatening, Hospitalization)
  Sender: FDA-Public Use
  Company Number: None

PATIENT
  Age: 45 Year
  Sex: Male
  Weight: 84.8226 kg

DRUGS (1)
  1. DEPAKOTE ER [Suspect]
     Indication: DEPRESSION
     Dosage: 200MG ONCE DAILY PO
     Route: 048

REACTIONS (1)
  - PANCREATITIS ACUTE [None]
